FAERS Safety Report 13128253 (Version 2)
Quarter: 2017Q1

REPORT INFORMATION
  Report Type: Report from Study
  Country: ES (occurrence: ES)
  Receive Date: 20170118
  Receipt Date: 20170119
  Transmission Date: 20170428
  Serious: Yes (Death, Life-Threatening, Hospitalization)
  Sender: FDA-Public Use
  Company Number: ES-009507513-1612ESP002005

PATIENT
  Age: 75 Year
  Sex: Female
  Weight: 65.6 kg

DRUGS (5)
  1. DEXAMETHASONE. [Suspect]
     Active Substance: DEXAMETHASONE
     Indication: PLASMA CELL MYELOMA
     Dosage: 40 MG DAILY ON DAYS 1, 8, 15 AND 22 OF REPEATED 28 DAYCYCLES
     Route: 048
     Dates: start: 20161115, end: 20161122
  2. LENALIDOMIDE [Suspect]
     Active Substance: LENALIDOMIDE
     Dosage: 25 MG DAILY ON DAYS 1-21 OF REPEATED 28 DAYCYCLES
     Route: 048
     Dates: start: 20161129, end: 20161129
  3. PEMBROLIZUMAB. [Suspect]
     Active Substance: PEMBROLIZUMAB
     Indication: PLASMA CELL MYELOMA
     Dosage: 200 MG, Q3W
     Route: 042
     Dates: start: 20161115, end: 20161115
  4. DEXAMETHASONE. [Suspect]
     Active Substance: DEXAMETHASONE
     Dosage: 40 MG DAILY ON DAYS 1, 8, 15 AND 22 OF REPEATED 28 DAYCYCLES
     Route: 048
     Dates: start: 20161129, end: 20161129
  5. LENALIDOMIDE [Suspect]
     Active Substance: LENALIDOMIDE
     Indication: PLASMA CELL MYELOMA
     Dosage: 25 MG DAILY ON DAYS 1-21 OF REPEATED 28 DAYCYCLES
     Route: 048
     Dates: start: 20161115, end: 20161128

REACTIONS (3)
  - Pneumonia [Not Recovered/Not Resolved]
  - Myocarditis [Fatal]
  - Hepatitis [Recovering/Resolving]

NARRATIVE: CASE EVENT DATE: 20161130
